FAERS Safety Report 5445194-4 (Version None)
Quarter: 2007Q3

REPORT INFORMATION
  Report Type: 
  Country: None (occurrence: None)
  Receive Date: 20070906
  Receipt Date: 20070827
  Transmission Date: 20080115
  Serious: Yes (Other)
  Sender: FDA-Public Use
  Company Number: US-PFIZER INC-2007064434

PATIENT
  Sex: Male
  Weight: 72.727 kg

DRUGS (4)
  1. CHANTIX [Suspect]
     Indication: SMOKING CESSATION THERAPY
  2. PREVACID [Concomitant]
  3. VASOTEC [Concomitant]
  4. ASPIRIN [Concomitant]

REACTIONS (5)
  - ABNORMAL DREAMS [None]
  - ANXIETY [None]
  - FEELING ABNORMAL [None]
  - SENSORY DISTURBANCE [None]
  - URINARY RETENTION [None]
